FAERS Safety Report 15256149 (Version 3)
Quarter: 2018Q3

REPORT INFORMATION
  Report Type: Report from Study
  Country: DE (occurrence: DE)
  Receive Date: 20180808
  Receipt Date: 20180904
  Transmission Date: 20181010
  Serious: Yes (Hospitalization)
  Sender: FDA-Public Use
  Company Number: PHHY2018DE058700

PATIENT
  Age: 48 Year
  Sex: Male
  Weight: 152 kg

DRUGS (5)
  1. EPLERON [Concomitant]
     Active Substance: EPLERENONE
     Indication: CARDIAC FAILURE
     Dosage: 50 OT, UNK
     Route: 048
     Dates: start: 201708
  2. ENTRESTO [Suspect]
     Active Substance: SACUBITRIL\VALSARTAN
     Indication: CARDIAC FAILURE
     Dosage: 1 DF (49/51 MG), BID
     Route: 048
     Dates: start: 20171027, end: 20180212
  3. ENTRESTO [Suspect]
     Active Substance: SACUBITRIL\VALSARTAN
     Dosage: 1 DF (49/51 MG), BID
     Route: 048
     Dates: start: 20180227, end: 20180323
  4. INSULIN GLARGINE [Concomitant]
     Active Substance: INSULIN GLARGINE
     Indication: DIABETES MELLITUS
     Dosage: 28 IU, UNK
     Route: 058
     Dates: start: 2016
  5. TORASEMIDE [Concomitant]
     Active Substance: TORSEMIDE
     Indication: CARDIAC FAILURE
     Dosage: 60 OT, UNK
     Route: 065
     Dates: start: 20180103

REACTIONS (7)
  - Erysipelas [Recovering/Resolving]
  - Cardiac failure [Recovering/Resolving]
  - Weight increased [Unknown]
  - Syncope [Recovered/Resolved]
  - Atrial flutter [Unknown]
  - Blood creatinine abnormal [Recovering/Resolving]
  - Atrial fibrillation [Recovering/Resolving]

NARRATIVE: CASE EVENT DATE: 20180122
